FAERS Safety Report 8073295-3 (Version None)
Quarter: 2012Q1

REPORT INFORMATION
  Report Type: 
  Country: None (occurrence: None)
  Receive Date: 20120120
  Receipt Date: 20120111
  Transmission Date: 20120608
  Serious: Yes (Hospitalization)
  Sender: FDA-Public Use
  Company Number: 128631

PATIENT
  Age: 52 Year
  Sex: Male

DRUGS (2)
  1. CISPLATIN [Suspect]
     Indication: TESTIS CANCER
     Dosage: 20MG/M2 DAILY FOR 5 DAYS
  2. ETOPOSIDE [Suspect]
     Indication: TESTIS CANCER
     Dosage: 75MG/2 DAILY FOR 5 DAYS

REACTIONS (5)
  - TUMOUR LYSIS SYNDROME [None]
  - RENAL FAILURE ACUTE [None]
  - HAEMODIALYSIS [None]
  - RENAL TUBULAR NECROSIS [None]
  - ACUTE RESPIRATORY DISTRESS SYNDROME [None]
